FAERS Safety Report 18442014 (Version 2)
Quarter: 2020Q4

REPORT INFORMATION
  Report Type: Spontaneous
  Country: US (occurrence: US)
  Receive Date: 20201029
  Receipt Date: 20201030
  Transmission Date: 20210114
  Serious: No
  Sender: FDA-Public Use
  Company Number: US-SA-2020SA300268

PATIENT

DRUGS (2)
  1. MULTAQ [Suspect]
     Active Substance: DRONEDARONE
     Indication: TACHYCARDIA
  2. MULTAQ [Suspect]
     Active Substance: DRONEDARONE
     Indication: CARDIAC ABLATION
     Dosage: UNK

REACTIONS (4)
  - Disease recurrence [Recovered/Resolved]
  - Heart rate decreased [Unknown]
  - Tachycardia [Recovered/Resolved]
  - Expired product administered [Unknown]
